FAERS Safety Report 10093986 (Version 3)
Quarter: 2014Q2

REPORT INFORMATION
  Report Type: Spontaneous
  Country: BR (occurrence: BR)
  Receive Date: 20140421
  Receipt Date: 20140606
  Transmission Date: 20141212
  Serious: Yes (Other)
  Sender: FDA-Public Use
  Company Number: BR-UCBSA-118636

PATIENT
  Age: 61 Year
  Sex: Female
  Weight: 63 kg

DRUGS (3)
  1. CIMZIA [Suspect]
     Indication: RHEUMATOID ARTHRITIS
     Dosage: DRUG STRENGTH:200MG/ML
     Route: 058
     Dates: start: 20140306, end: 2014
  2. CIMZIA [Suspect]
     Dosage: 200MG/ML
     Route: 058
     Dates: start: 20140428
  3. CLEAR SKIN AVON [Suspect]
     Indication: ACNE
     Route: 061
     Dates: start: 201403

REACTIONS (6)
  - Eyelid oedema [Recovered/Resolved]
  - Swelling face [Recovered/Resolved]
  - Erythema [Recovered/Resolved]
  - Skin exfoliation [Recovered/Resolved]
  - Pruritus [Unknown]
  - Medication error [Unknown]
